FAERS Safety Report 7370824-X (Version None)
Quarter: 2011Q1

REPORT INFORMATION
  Report Type: 
  Country: None (occurrence: None)
  Receive Date: 20110324
  Receipt Date: 20081125
  Transmission Date: 20110831
  Serious: No
  Sender: FDA-Public Use
  Company Number: 2008BI032127

PATIENT
  Age: 60 Year
  Sex: Female
  Weight: 107 kg

DRUGS (2)
  1. BENADRYL [Concomitant]
     Indication: PREMEDICATION
     Route: 042
     Dates: start: 20110303, end: 20110303
  2. TYSABRI [Suspect]
     Indication: MULTIPLE SCLEROSIS
     Route: 042
     Dates: start: 20081124

REACTIONS (13)
  - NAUSEA [None]
  - PAIN [None]
  - MYALGIA [None]
  - URTICARIA [None]
  - MUSCULAR WEAKNESS [None]
  - MOBILITY DECREASED [None]
  - INITIAL INSOMNIA [None]
  - SENSATION OF HEAVINESS [None]
  - DIZZINESS [None]
  - FATIGUE [None]
  - DRUG EFFECT DECREASED [None]
  - DIARRHOEA [None]
  - MUSCLE SPASMS [None]
